FAERS Safety Report 5974916-9 (Version None)
Quarter: 2008Q4

REPORT INFORMATION
  Report Type: 
  Country: None (occurrence: None)
  Receive Date: 20081202
  Receipt Date: 20081126
  Transmission Date: 20090506
  Serious: Yes (Other)
  Sender: FDA-Public Use
  Company Number: JP-PFIZER INC-2008100696

PATIENT
  Sex: Male
  Weight: 63 kg

DRUGS (5)
  1. SU-011,248 [Suspect]
     Indication: RENAL CELL CARCINOMA
     Route: 048
     Dates: start: 20080911
  2. OXYCONTIN [Concomitant]
     Dosage: TEXT:30 MG
     Route: 048
  3. PURSENNID [Concomitant]
     Route: 048
  4. MAGNESIUM OXIDE [Concomitant]
     Route: 048
  5. MOBIC [Concomitant]
     Dosage: DAILY DOSE:10MG
     Route: 048

REACTIONS (2)
  - LUNG DISORDER [None]
  - PLEURAL EFFUSION [None]
